FAERS Safety Report 25603427 (Version 2)
Quarter: 2025Q3

REPORT INFORMATION
  Report Type: Spontaneous
  Country: US (occurrence: US)
  Receive Date: 20250724
  Receipt Date: 20250729
  Transmission Date: 20251020
  Serious: No
  Sender: SANDOZ
  Company Number: US-SANDOZ-SDZ2025US052224

PATIENT
  Age: 38 Year
  Sex: Female
  Weight: 61.23 kg

DRUGS (2)
  1. CLINDAMYCIN [Suspect]
     Active Substance: CLINDAMYCIN
     Indication: Bacterial vaginosis
     Dosage: 5 G, QD (STRENGTH 2%)
     Route: 067
     Dates: start: 20240430, end: 20240506
  2. CLINDAMYCIN [Suspect]
     Active Substance: CLINDAMYCIN
     Dosage: UNK, (STRNGTH 2% CREAM)
     Route: 067
     Dates: start: 202405, end: 202405

REACTIONS (4)
  - Vulvovaginal burning sensation [Not Recovered/Not Resolved]
  - Vulvovaginal pruritus [Not Recovered/Not Resolved]
  - Vulvovaginal discomfort [Not Recovered/Not Resolved]
  - Vulvovaginal inflammation [Not Recovered/Not Resolved]

NARRATIVE: CASE EVENT DATE: 20240501
